FAERS Safety Report 8563982-2 (Version None)
Quarter: 2012Q3

REPORT INFORMATION
  Report Type: 
  Country: None (occurrence: None)
  Receive Date: 20120803
  Receipt Date: 20120731
  Transmission Date: 20120928
  Serious: Yes (Hospitalization, Other)
  Sender: FDA-Public Use
  Company Number: PHHY2012BR066628

PATIENT
  Sex: Male
  Weight: 110 kg

DRUGS (4)
  1. PANTOPRAZOLE [Concomitant]
     Indication: GASTRITIS
     Dosage: 1 DF, DAILY
     Route: 048
     Dates: start: 20110701
  2. LEGALON [Concomitant]
     Indication: TOXICITY TO VARIOUS AGENTS
     Dosage: 2 DF, DAILY
     Route: 048
     Dates: start: 20120701
  3. DIOVAN HCT [Suspect]
     Indication: HYPERTENSION
     Dosage: 1 DF (80MG VALS/ 12.5MG HCT), DAILY
     Route: 048
     Dates: start: 20110101
  4. EYE DROPS [Concomitant]
     Indication: GLAUCOMA
     Dates: start: 20050101

REACTIONS (4)
  - BLOOD PRESSURE INCREASED [None]
  - ACUTE MYELOID LEUKAEMIA [None]
  - THROMBOSIS [None]
  - PAIN IN EXTREMITY [None]
